FAERS Safety Report 4496844-0 (Version None)
Quarter: 2004Q4

REPORT INFORMATION
  Report Type: 
  Country: None (occurrence: None)
  Receive Date: 20041109
  Receipt Date: 20040609
  Transmission Date: 20050328
  Serious: Yes (Other)
  Sender: FDA-Public Use
  Company Number: IT-GLAXOSMITHKLINE-B0336970A

PATIENT
  Age: 61 Year
  Sex: Female

DRUGS (4)
  1. AMOXYCILLIN + CLAVULANIC ACID [Suspect]
     Indication: SUPERINFECTION
     Dosage: 3G PER DAY
     Route: 048
     Dates: start: 20040513, end: 20040522
  2. FLUCONAZOLE [Suspect]
     Dosage: 100MG PER DAY
     Route: 048
     Dates: start: 20040513, end: 20040522
  3. CHLORTHALIDONE [Concomitant]
     Indication: HYPERTENSION
     Dosage: 25MG PER DAY
     Route: 048
  4. LACIDIPINE [Concomitant]
     Indication: HYPERTENSION
     Dosage: 6MG PER DAY
     Route: 048

REACTIONS (10)
  - ARTHRALGIA [None]
  - ARTHROPATHY [None]
  - DISABILITY [None]
  - DYSPHAGIA [None]
  - MASTICATION DISORDER [None]
  - ORAL CANDIDIASIS [None]
  - POLYURIA [None]
  - PRURITUS [None]
  - STOMATITIS [None]
  - URTICARIA [None]
